FAERS Safety Report 9687398 (Version 1)
Quarter: 2013Q4

REPORT INFORMATION
  Report Type: Spontaneous
  Country: US (occurrence: US)
  Receive Date: 20131114
  Receipt Date: 20131114
  Transmission Date: 20140711
  Serious: No
  Sender: FDA-Public Use
  Company Number: US-009507513-1311USA004251

PATIENT
  Age: 32 Year
  Sex: Female

DRUGS (4)
  1. NASONEX [Suspect]
     Indication: HYPERSENSITIVITY
     Dosage: ONE SPRAY IN EACH NOSTRIL ONCE DAILY
     Route: 055
  2. SINGULAIR [Concomitant]
  3. SYMBICORT [Concomitant]
  4. MICROGESTIN [Concomitant]

REACTIONS (3)
  - Rhinorrhoea [Not Recovered/Not Resolved]
  - Sneezing [Not Recovered/Not Resolved]
  - Drug dose omission [Unknown]
